FAERS Safety Report 20905856 (Version 1)
Quarter: 2022Q2

REPORT INFORMATION
  Report Type: Report from Study
  Country: GB (occurrence: US)
  Receive Date: 20220602
  Receipt Date: 20220602
  Transmission Date: 20220721
  Serious: Yes (Hospitalization, Other)
  Sender: FDA-Public Use
  Company Number: US-BAYER-200931856GPV

PATIENT
  Age: 63 Year
  Sex: Female

DRUGS (14)
  1. BEVACIZUMAB [Suspect]
     Active Substance: BEVACIZUMAB
     Indication: Ovarian cancer
     Dosage: 15 MG/KG, EVERY 3 WEEKS
     Route: 042
     Dates: start: 20090617
  2. CARBOPLATIN [Suspect]
     Active Substance: CARBOPLATIN
     Indication: Ovarian cancer
     Dosage: 5 AUC, EVERY 3 WEEKS
     Route: 042
     Dates: start: 20090708
  3. GLIPIZIDE [Suspect]
     Active Substance: GLIPIZIDE
     Route: 065
  4. LIPITOR [Suspect]
     Active Substance: ATORVASTATIN CALCIUM
     Route: 065
  5. PACLITAXEL [Suspect]
     Active Substance: PACLITAXEL
     Indication: Ovarian cancer
     Dosage: 175 MG/M2
     Route: 042
     Dates: start: 20090617
  6. ATIVAN [Suspect]
     Active Substance: LORAZEPAM
     Route: 065
  7. IRBESARTAN [Suspect]
     Active Substance: IRBESARTAN
     Route: 065
  8. IRBESARTAN [Suspect]
     Active Substance: IRBESARTAN
     Dosage: UNK
     Route: 065
  9. AVANDAMET [Suspect]
     Active Substance: METFORMIN HYDROCHLORIDE\ROSIGLITAZONE MALEATE
     Route: 065
  10. ALEVE [Suspect]
     Active Substance: NAPROXEN SODIUM
     Route: 065
  11. COUMADIN [Suspect]
     Active Substance: WARFARIN SODIUM
     Route: 065
  12. LEVOCARNITINE [Suspect]
     Active Substance: LEVOCARNITINE
     Route: 065
  13. MAGNESIUM OXIDE [Suspect]
     Active Substance: MAGNESIUM OXIDE
     Route: 065
  14. OXYCONTIN [Suspect]
     Active Substance: OXYCODONE HYDROCHLORIDE
     Route: 065

REACTIONS (4)
  - Febrile neutropenia [Recovered/Resolved]
  - Rectal haemorrhage [Recovered/Resolved]
  - Dyspnoea [Recovered/Resolved]
  - Fatigue [Recovered/Resolved]

NARRATIVE: CASE EVENT DATE: 20090802
